FAERS Safety Report 21017682 (Version 3)
Quarter: 2022Q4

REPORT INFORMATION
  Report Type: Report from Study
  Country: US (occurrence: None)
  Receive Date: 20220628
  Receipt Date: 20221122
  Transmission Date: 20230112
  Serious: Yes (Other)
  Sender: FDA-Public Use
  Company Number: US-Merck Healthcare KGaA-9331773

PATIENT
  Sex: Male

DRUGS (1)
  1. REBIF [Suspect]
     Active Substance: INTERFERON BETA-1A
     Indication: Multiple sclerosis
     Dosage: EXPIRY DATE: /DEC/2023
     Route: 058
     Dates: start: 20191202

REACTIONS (5)
  - Haemorrhoids [Unknown]
  - Erectile dysfunction [Not Recovered/Not Resolved]
  - Blood testosterone increased [Unknown]
  - Urinary incontinence [Recovered/Resolved]
  - Enuresis [Recovered/Resolved]
